FAERS Safety Report 8941758 (Version 2)
Quarter: 2013Q1

REPORT INFORMATION
  Report Type: Report from Study
  Country: JP (occurrence: JP)
  Receive Date: 20121203
  Receipt Date: 20130111
  Transmission Date: 20140127
  Serious: Yes (Hospitalization, Other)
  Sender: FDA-Public Use
  Company Number: JP-ROCHE-1151138

PATIENT
  Age: 69 Year
  Sex: Male
  Weight: 59 kg

DRUGS (16)
  1. METHOXY POLYETHYLENE GLYCOL-EPOETIN BETA [Suspect]
     Indication: NEPHROGENIC ANAEMIA
     Route: 058
     Dates: start: 20111013, end: 20111208
  2. METHOXY POLYETHYLENE GLYCOL-EPOETIN BETA [Suspect]
     Indication: NEPHROGENIC ANAEMIA
     Route: 058
     Dates: start: 20120105, end: 20120329
  3. RENIVACE [Suspect]
     Indication: HYPERTENSION
     Route: 048
     Dates: end: 20120202
  4. MICARDIS [Suspect]
     Indication: HYPERTENSION
     Route: 048
     Dates: start: 20120107
  5. IRBESARTAN [Suspect]
     Indication: HYPERTENSION
     Route: 048
     Dates: end: 20120106
  6. COVERSYL [Suspect]
     Indication: HYPERTENSION
     Route: 048
     Dates: start: 20120202
  7. EUGLUCON [Concomitant]
     Indication: DIABETES MELLITUS
     Route: 048
     Dates: end: 20120105
  8. ZYLORIC [Concomitant]
     Indication: HYPERURICAEMIA
     Route: 048
  9. LIPITOR [Concomitant]
     Indication: HYPERLIPIDAEMIA
     Route: 048
  10. LASIX [Concomitant]
     Indication: DIABETIC NEPHROPATHY
     Route: 048
  11. ADALAT [Concomitant]
     Indication: HYPERLIPIDAEMIA
     Dosage: DRUG REPORTED AS : ADALAT-CR
     Route: 048
  12. CARDENALIN [Concomitant]
     Indication: HYPERTENSION
     Route: 048
     Dates: start: 20111208, end: 20120228
  13. EQUATE (ORAL) [Concomitant]
     Route: 048
     Dates: start: 20120409
  14. OMEPRAL [Concomitant]
     Route: 048
     Dates: start: 20120109, end: 20120708
  15. PARIET [Concomitant]
     Route: 048
     Dates: start: 20120709
  16. REMITCH [Concomitant]
     Route: 048
     Dates: start: 20120511

REACTIONS (3)
  - Hyperkalaemia [Recovered/Resolved]
  - Renal failure chronic [Unknown]
  - Hypertension [Unknown]
